FAERS Safety Report 8766891 (Version 5)
Quarter: 2013Q3

REPORT INFORMATION
  Report Type: Spontaneous
  Country: US (occurrence: US)
  Receive Date: 20120904
  Receipt Date: 20130802
  Transmission Date: 20140515
  Serious: Yes (Hospitalization)
  Sender: FDA-Public Use
  Company Number: US-JNJFOC-20120812302

PATIENT
  Age: 45 Year
  Sex: Female

DRUGS (8)
  1. INVEGA SUSTENNA [Suspect]
     Indication: SCHIZOAFFECTIVE DISORDER
     Route: 030
     Dates: end: 20120703
  2. INVEGA SUSTENNA [Suspect]
     Indication: SCHIZOAFFECTIVE DISORDER
     Route: 030
     Dates: start: 20120606
  3. INVEGA SUSTENNA [Suspect]
     Indication: SCHIZOAFFECTIVE DISORDER
     Route: 030
  4. INVEGA SUSTENNA [Suspect]
     Indication: SCHIZOAFFECTIVE DISORDER
     Route: 030
     Dates: start: 20120703
  5. INVEGA SUSTENNA [Suspect]
     Indication: SCHIZOAFFECTIVE DISORDER
     Route: 030
     Dates: start: 20100923
  6. BUPROPION [Concomitant]
     Indication: MOOD SWINGS
     Route: 048
     Dates: start: 20120531
  7. HALOPERIDOL [Concomitant]
     Indication: HALLUCINATION
     Route: 048
     Dates: start: 20120531
  8. INVEGA [Concomitant]
     Indication: HALLUCINATION, AUDITORY
     Route: 048
     Dates: start: 20120531

REACTIONS (2)
  - Injection site nodule [Recovered/Resolved]
  - Injection site pain [Recovered/Resolved]
